FAERS Safety Report 13034207 (Version 1)
Quarter: 2016Q4

REPORT INFORMATION
  Report Type: Spontaneous
  Country: US (occurrence: US)
  Receive Date: 20161215
  Receipt Date: 20161215
  Transmission Date: 20170207
  Serious: Yes (Life-Threatening)
  Sender: FDA-Public Use
  Company Number: None

PATIENT
  Age: 50 Year
  Sex: Male
  Weight: 117 kg

DRUGS (2)
  1. XTAMPZA [Suspect]
     Active Substance: OXYCODONE
     Indication: PAIN IN EXTREMITY
  2. XTAMPZA [Suspect]
     Active Substance: OXYCODONE
     Indication: BACK PAIN

REACTIONS (1)
  - Food interaction [None]

NARRATIVE: CASE EVENT DATE: 20161117
